FAERS Safety Report 5320706-X (Version None)
Quarter: 2007Q1

REPORT INFORMATION
  Report Type: 
  Country: None (occurrence: None)
  Receive Date: 20070220
  Receipt Date: 20061212
  Transmission Date: 20070707
  Serious: No
  Sender: FDA-Public Use
  Company Number: WAES 0612USA02516

PATIENT
  Age: 57 Year
  Sex: Male

DRUGS (6)
  1. JANUVIA [Suspect]
     Indication: DIABETES MELLITUS NON-INSULIN-DEPENDENT
     Dosage: 100 MG DAILY PO
     Route: 048
     Dates: start: 20061101, end: 20060101
  2. CLARITIN [Concomitant]
  3. VANCERIL [Concomitant]
  4. ENALAPRIL MALEATE [Concomitant]
  5. HYDROCHLOROTHIAZIDE [Concomitant]
  6. METFORMIN HCL [Concomitant]

REACTIONS (2)
  - PRURITUS GENERALISED [None]
  - RASH [None]
